FAERS Safety Report 5180054-8 (Version None)
Quarter: 2006Q4

REPORT INFORMATION
  Report Type: 
  Country: None (occurrence: None)
  Receive Date: 20061211
  Receipt Date: 20061204
  Transmission Date: 20070319
  Serious: Yes (Hospitalization)
  Sender: FDA-Public Use
  Company Number: B0449668A

PATIENT
  Age: 45 Year
  Sex: Female

DRUGS (2)
  1. AMERGE [Suspect]
     Indication: MIGRAINE
  2. ANALGESIC [Concomitant]

REACTIONS (2)
  - CONFUSIONAL STATE [None]
  - LOSS OF CONSCIOUSNESS [None]
